FAERS Safety Report 23798423 (Version 1)
Quarter: 2024Q2

REPORT INFORMATION
  Report Type: Spontaneous
  Country: AR (occurrence: AR)
  Receive Date: 20240430
  Receipt Date: 20240430
  Transmission Date: 20240716
  Serious: Yes (Hospitalization)
  Sender: FDA-Public Use
  Company Number: AR-Zuellig Korea-ATNAHS20240401208

PATIENT

DRUGS (1)
  1. VALIUM [Suspect]
     Active Substance: DIAZEPAM
     Indication: Panic attack

REACTIONS (5)
  - Diarrhoea [Unknown]
  - Decreased immune responsiveness [Unknown]
  - Weight decreased [Unknown]
  - Gastritis [Unknown]
  - Irritable bowel syndrome [Unknown]
